FAERS Safety Report 4434937-4 (Version None)
Quarter: 2004Q3

REPORT INFORMATION
  Report Type: 
  Country: None (occurrence: None)
  Receive Date: 20040827
  Receipt Date: 20040719
  Transmission Date: 20050211
  Serious: Yes (Death, Hospitalization, Other)
  Sender: FDA-Public Use
  Company Number: US-BRISTOL-MYERS SQUIBB COMPANY-12644878

PATIENT
  Age: 37 Year
  Sex: Female

DRUGS (3)
  1. ERBITUX [Suspect]
     Indication: COLORECTAL CANCER METASTATIC
     Dosage: REC'D 2 WEEKLY TREATMENTS, 05-JUL-04 TO 19-JUL-04
     Route: 042
     Dates: start: 20040705, end: 20040705
  2. OXYCODONE HCL [Concomitant]
  3. RITALIN [Concomitant]

REACTIONS (6)
  - ACNE [None]
  - CYST [None]
  - DEATH [None]
  - DISEASE PROGRESSION [None]
  - HYPOKALAEMIA [None]
  - NAUSEA [None]
